FAERS Safety Report 21312267 (Version 1)
Quarter: 2022Q3

REPORT INFORMATION
  Report Type: Spontaneous
  Country: US (occurrence: None)
  Receive Date: 20220909
  Receipt Date: 20220909
  Transmission Date: 20221027
  Serious: No
  Sender: FDA-Public Use
  Company Number: US-ARIS GLOBAL-202205-0883

PATIENT
  Sex: Female

DRUGS (17)
  1. OXERVATE [Suspect]
     Active Substance: CENEGERMIN-BKBJ
     Indication: Neurotrophic keratopathy
     Route: 047
     Dates: start: 20220421
  2. ADDERALL [Concomitant]
     Active Substance: AMPHETAMINE ASPARTATE\AMPHETAMINE SULFATE\DEXTROAMPHETAMINE SACCHARATE\DEXTROAMPHETAMINE SULFATE
  3. CINNAMON [Concomitant]
     Active Substance: CINNAMON
  4. ADDYI [Concomitant]
     Active Substance: FLIBANSERIN
  5. ABILIFY [Concomitant]
     Active Substance: ARIPIPRAZOLE
  6. AZASITE [Concomitant]
     Active Substance: AZITHROMYCIN MONOHYDRATE
  7. PROGESTERONE [Concomitant]
     Active Substance: PROGESTERONE
  8. D-MANNOSE [Concomitant]
  9. TRAZODONE HCL [Concomitant]
     Active Substance: TRAZODONE HYDROCHLORIDE
  10. FISH OIL-OMEGA-3-VIT D [Concomitant]
  11. MAGNESIUM [Concomitant]
     Active Substance: MAGNESIUM
  12. VITAMIN D3 [Concomitant]
     Active Substance: CHOLECALCIFEROL
  13. XIIDRA [Concomitant]
     Active Substance: LIFITEGRAST
  14. ESTRADIOL [Concomitant]
     Active Substance: ESTRADIOL
  15. PROBIOTICS NOS [Concomitant]
     Active Substance: PROBIOTICS NOS
     Dosage: 10 BILLION CELL
  16. LEVOMEFOLIC ACID [Concomitant]
     Active Substance: LEVOMEFOLIC ACID
  17. PROZAC [Concomitant]
     Active Substance: FLUOXETINE HYDROCHLORIDE

REACTIONS (1)
  - Intentional product misuse [Unknown]
